FAERS Safety Report 7428763-1 (Version None)
Quarter: 2011Q2

REPORT INFORMATION
  Report Type: 
  Country: None (occurrence: None)
  Receive Date: 20110421
  Receipt Date: 20110418
  Transmission Date: 20111010
  Serious: Yes (Other)
  Sender: FDA-Public Use
  Company Number: CN-PFIZER INC-2011083874

PATIENT
  Weight: 27 kg

DRUGS (2)
  1. ZITHROMAX [Suspect]
     Indication: PHARYNGEAL ERYTHEMA
  2. ZITHROMAX [Suspect]
     Indication: PYREXIA
     Dosage: 250 MG EVERY TIME
     Route: 048
     Dates: start: 20110401, end: 20110401

REACTIONS (1)
  - BRONCHOPNEUMONIA [None]
